FAERS Safety Report 4972755-9 (Version None)
Quarter: 2006Q2

REPORT INFORMATION
  Report Type: 
  Country: None (occurrence: None)
  Receive Date: 20060410
  Receipt Date: 20060324
  Transmission Date: 20061013
  Serious: Yes (Hospitalization)
  Sender: FDA-Public Use
  Company Number: 196731

PATIENT
  Age: 55 Year
  Sex: Male
  Weight: 82.5547 kg

DRUGS (2)
  1. AVONEX [Suspect]
     Indication: MULTIPLE SCLEROSIS
     Dosage: SEE IMAGE
     Route: 030
     Dates: start: 19991201, end: 20030801
  2. AVONEX [Suspect]
     Indication: MULTIPLE SCLEROSIS
     Dosage: SEE IMAGE
     Route: 030
     Dates: start: 20030801, end: 20060317

REACTIONS (10)
  - BACK PAIN [None]
  - BUTTOCK PAIN [None]
  - CARDIAC ENZYMES INCREASED [None]
  - CHEST PAIN [None]
  - CHEST WALL CYST [None]
  - CYST [None]
  - FATIGUE [None]
  - GROIN PAIN [None]
  - PARAESTHESIA [None]
  - TESTICULAR PAIN [None]
